FAERS Safety Report 6212965-6 (Version None)
Quarter: 2009Q2

REPORT INFORMATION
  Report Type: 
  Country: None (occurrence: None)
  Receive Date: 20090602
  Receipt Date: 20090602
  Transmission Date: 20091009
  Serious: Yes (Hospitalization)
  Sender: FDA-Public Use
  Company Number: None

PATIENT
  Sex: Male
  Weight: 97.5 kg

DRUGS (11)
  1. CYCLOPHOSPHAMIDE [Suspect]
     Dosage: 1605 MG
  2. DOXIL [Suspect]
     Dosage: 86 MG
  3. NEULASTA [Suspect]
     Dosage: 6 MG
  4. PREDNISONE [Suspect]
     Dosage: 400 MG
  5. RITUXIMAB (MOAB C2B8 ANTI CD20, CHIMERIC) [Suspect]
     Dosage: 803 MG
  6. VINCRISTINE SULFATE [Suspect]
     Dosage: 2 MG
  7. ALLOPURINOL [Concomitant]
  8. COLACE [Concomitant]
  9. LISINOPRIL [Concomitant]
  10. SYNTHROID [Concomitant]
  11. TERAZOSIN HCL [Concomitant]

REACTIONS (3)
  - HAEMOGLOBIN DECREASED [None]
  - PYREXIA [None]
  - WHITE BLOOD CELL COUNT DECREASED [None]
